FAERS Safety Report 23305695 (Version 2)
Quarter: 2023Q4

REPORT INFORMATION
  Report Type: Report from Study
  Country: US (occurrence: US)
  Receive Date: 20231218
  Receipt Date: 20231220
  Transmission Date: 20240110
  Serious: Yes (Death, Other)
  Sender: FDA-Public Use
  Company Number: US-ABBVIE-5543263

PATIENT
  Sex: Female
  Weight: 49 kg

DRUGS (1)
  1. IMBRUVICA [Suspect]
     Active Substance: IBRUTINIB
     Indication: Chronic lymphocytic leukaemia
     Route: 048
     Dates: start: 2013, end: 202307

REACTIONS (8)
  - Cerebrovascular accident [Fatal]
  - Staphylococcal infection [Not Recovered/Not Resolved]
  - Unevaluable event [Unknown]
  - Aphasia [Not Recovered/Not Resolved]
  - Cerebral haemorrhage [Unknown]
  - Nervous system disorder [Not Recovered/Not Resolved]
  - Stasis dermatitis [Not Recovered/Not Resolved]
  - Squamous cell carcinoma of skin [Not Recovered/Not Resolved]

NARRATIVE: CASE EVENT DATE: 20130101
